FAERS Safety Report 12246947 (Version 1)
Quarter: 2016Q2

REPORT INFORMATION
  Report Type: Spontaneous
  Country: DE (occurrence: DE)
  Receive Date: 20160407
  Receipt Date: 20160407
  Transmission Date: 20160815
  Serious: Yes (Other)
  Sender: FDA-Public Use
  Company Number: DE-MYLANLABS-2016M1013885

PATIENT

DRUGS (5)
  1. BUSCOPAN PLUS [Concomitant]
     Active Substance: ACETAMINOPHEN\BUTYLSCOPOLAMINE BROMIDE
     Indication: PRODUCT USED FOR UNKNOWN INDICATION
     Dosage: 500/10 MG (ONCE 20 TABLETS)
     Route: 048
  2. EXFORGE [Concomitant]
     Active Substance: AMLODIPINE BESYLATE\VALSARTAN
     Indication: PRODUCT USED FOR UNKNOWN INDICATION
     Dosage: UNK (ONCE 10 TABLETS)
     Route: 048
  3. TANNACOMP                          /01085401/ [Concomitant]
     Indication: PRODUCT USED FOR UNKNOWN INDICATION
     Dosage: 50/500MG (ONCE 10 TABLETS)
     Route: 048
  4. GRIPPOSTAD                         /06426501/ [Concomitant]
     Indication: PRODUCT USED FOR UNKNOWN INDICATION
     Dosage: UNK (ONCE 10 TABLETS)
     Route: 048
  5. METODURA? 100 MG, TABLETTEN [Suspect]
     Active Substance: METOPROLOL TARTRATE
     Indication: PRODUCT USED FOR UNKNOWN INDICATION
     Dosage: 100 MG, UNK (ONCE 40 TABLETS IN TOTAL OF 4000 MG)
     Route: 048

REACTIONS (5)
  - Hypotension [Unknown]
  - Apathy [Unknown]
  - Suicide attempt [Unknown]
  - Intentional overdose [Unknown]
  - Bradycardia [Unknown]
